FAERS Safety Report 14506822 (Version 2)
Quarter: 2018Q1

REPORT INFORMATION
  Report Type: Spontaneous
  Country: CY (occurrence: CY)
  Receive Date: 20180208
  Receipt Date: 20180216
  Transmission Date: 20180509
  Serious: Yes (Hospitalization, Other)
  Sender: FDA-Public Use
  Company Number: CY-PFIZER INC-2018049111

PATIENT
  Age: 40 Year
  Sex: Female

DRUGS (1)
  1. LYRICA [Suspect]
     Active Substance: PREGABALIN
     Indication: NECK PAIN
     Dosage: 75 MG, DAILY

REACTIONS (2)
  - Glaucoma [Recovered/Resolved]
  - Product use in unapproved indication [Unknown]
